FAERS Safety Report 24337882 (Version 1)
Quarter: 2024Q3

REPORT INFORMATION
  Report Type: Spontaneous
  Country: FR (occurrence: FR)
  Receive Date: 20240919
  Receipt Date: 20240919
  Transmission Date: 20241017
  Serious: Yes (Life-Threatening, Other)
  Sender: HIKMA
  Company Number: FR-HIKMA PHARMACEUTICALS-FR-H14001-24-08457

PATIENT

DRUGS (4)
  1. ATRACURIUM [Suspect]
     Active Substance: ATRACURIUM
     Indication: Anaesthesia
     Dosage: UNKNOWN
     Route: 042
     Dates: start: 20240524, end: 20240524
  2. CEFAZOLIN [Suspect]
     Active Substance: CEFAZOLIN
     Indication: Antibiotic prophylaxis
     Dosage: UNKNOWN
     Route: 042
     Dates: start: 20240524, end: 20240524
  3. KETAMINE [Suspect]
     Active Substance: KETAMINE
     Indication: Anaesthesia
     Dosage: UNKNOWN
     Route: 042
     Dates: start: 20240524, end: 20240524
  4. SUFENTANIL [Suspect]
     Active Substance: SUFENTANIL
     Indication: Anaesthesia
     Dosage: UNKNOWN
     Route: 042
     Dates: start: 20240524, end: 20240524

REACTIONS (1)
  - Anaphylactic shock [Recovered/Resolved]

NARRATIVE: CASE EVENT DATE: 20240524
